FAERS Safety Report 13530402 (Version 1)
Quarter: 2017Q2

REPORT INFORMATION
  Report Type: Spontaneous
  Country: GB (occurrence: GB)
  Receive Date: 20170509
  Receipt Date: 20170509
  Transmission Date: 20170830
  Serious: Yes (Hospitalization)
  Sender: FDA-Public Use
  Company Number: PHFR2017GB003190

PATIENT
  Age: 56 Year
  Sex: Male

DRUGS (36)
  1. 5-FLUOROURACIL [Suspect]
     Active Substance: FLUOROURACIL
     Dosage: UNK
     Route: 042
     Dates: start: 20150909, end: 20151001
  2. AVASTIN [Suspect]
     Active Substance: BEVACIZUMAB
     Indication: COLORECTAL CANCER METASTATIC
     Dosage: UNK
     Route: 042
     Dates: start: 20160405
  3. OXALIPLATIN. [Suspect]
     Active Substance: OXALIPLATIN
     Dosage: UNK
     Route: 042
     Dates: start: 20151209
  4. 5-FLUOROURACIL [Suspect]
     Active Substance: FLUOROURACIL
     Dosage: 4800 MG, BIW
     Route: 040
     Dates: start: 20151111
  5. 5-FLUOROURACIL [Suspect]
     Active Substance: FLUOROURACIL
     Dosage: 4800 MG, BIW
     Route: 042
     Dates: start: 20160127
  6. FLUCLOXACILLIN [Concomitant]
     Active Substance: FLUCLOXACILLIN
     Indication: PRODUCT USED FOR UNKNOWN INDICATION
     Dosage: 500 MG, UNK
     Route: 065
     Dates: start: 20160712, end: 20160716
  7. OXALIPLATIN. [Suspect]
     Active Substance: OXALIPLATIN
     Dosage: UNK
     Route: 042
     Dates: start: 20150909, end: 20151001
  8. OXALIPLATIN. [Suspect]
     Active Substance: OXALIPLATIN
     Dosage: UNK
  9. AVASTIN [Suspect]
     Active Substance: BEVACIZUMAB
     Dosage: UNK
     Route: 042
     Dates: start: 20160316
  10. FOLINIC ACID [Suspect]
     Active Substance: LEUCOVORIN
     Dosage: 400 MG/M2, BIW
     Route: 042
     Dates: start: 20160127
  11. ONDANSETRON [Concomitant]
     Active Substance: ONDANSETRON
     Indication: PRODUCT USED FOR UNKNOWN INDICATION
     Dosage: DAILY DOSE: 8 MILLIGRAM
     Route: 065
     Dates: start: 20151110
  12. 5-FLUOROURACIL [Suspect]
     Active Substance: FLUOROURACIL
     Dosage: 4800 MG, UNK
     Route: 042
     Dates: start: 20151125
  13. AVASTIN [Suspect]
     Active Substance: BEVACIZUMAB
     Dosage: UNK
     Route: 042
     Dates: start: 20151209
  14. FOLINIC ACID [Suspect]
     Active Substance: LEUCOVORIN
     Dosage: 350 MG, UNK
     Route: 042
     Dates: start: 20161125
  15. OXALIPLATIN. [Suspect]
     Active Substance: OXALIPLATIN
     Dosage: UNK
     Route: 042
     Dates: start: 20151111
  16. 5-FLUOROURACIL [Suspect]
     Active Substance: FLUOROURACIL
     Indication: COLORECTAL CANCER METASTATIC
     Dosage: 800 MG, BIW
     Route: 041
     Dates: start: 20151111
  17. 5-FLUOROURACIL [Suspect]
     Active Substance: FLUOROURACIL
     Dosage: UNK
     Route: 042
     Dates: start: 20160316
  18. 5-FLUOROURACIL [Suspect]
     Active Substance: FLUOROURACIL
     Dosage: 800 MG, BIW
     Route: 040
     Dates: start: 20151125
  19. AVASTIN [Suspect]
     Active Substance: BEVACIZUMAB
     Dosage: UNK
     Route: 042
     Dates: start: 20151111
  20. FOLINIC ACID [Suspect]
     Active Substance: LEUCOVORIN
     Dosage: UNK
     Route: 042
     Dates: start: 20151209
  21. CO-AMOXICLAV [Concomitant]
     Active Substance: AMOXICILLIN\CLAVULANIC ACID
     Indication: PRODUCT USED FOR UNKNOWN INDICATION
     Dosage: 625 MG, UNK
     Route: 065
     Dates: start: 20160531, end: 20160621
  22. 5-FLUOROURACIL [Suspect]
     Active Substance: FLUOROURACIL
     Dosage: UNK
     Route: 042
     Dates: start: 20151209
  23. AVASTIN [Suspect]
     Active Substance: BEVACIZUMAB
     Dosage: UNK
     Route: 042
     Dates: start: 20151125
  24. AVASTIN [Suspect]
     Active Substance: BEVACIZUMAB
     Dosage: 490 MG, QW
     Route: 042
     Dates: start: 20160914, end: 20161012
  25. OXALIPLATIN. [Suspect]
     Active Substance: OXALIPLATIN
     Dosage: UNK
     Route: 042
     Dates: start: 20160127
  26. 5-FLUOROURACIL [Suspect]
     Active Substance: FLUOROURACIL
     Dosage: UNK
  27. AVASTIN [Suspect]
     Active Substance: BEVACIZUMAB
     Indication: BREAST CANCER METASTATIC
     Dosage: 490 MG, BIW
     Route: 042
     Dates: start: 20150909, end: 20151001
  28. OXALIPLATIN. [Suspect]
     Active Substance: OXALIPLATIN
     Indication: COLORECTAL CANCER METASTATIC
     Dosage: 170 MG, BIW
     Route: 042
     Dates: start: 20151125
  29. 5-FLUOROURACIL [Suspect]
     Active Substance: FLUOROURACIL
     Dosage: UNK
     Route: 042
     Dates: start: 20160405
  30. 5-FLUOROURACIL [Suspect]
     Active Substance: FLUOROURACIL
     Dosage: UNK
     Route: 042
     Dates: start: 20160914, end: 20161012
  31. AVASTIN [Suspect]
     Active Substance: BEVACIZUMAB
     Dosage: UNK
     Route: 042
     Dates: start: 20160127
  32. FOLINIC ACID [Suspect]
     Active Substance: LEUCOVORIN
     Indication: COLORECTAL CANCER METASTATIC
     Route: 042
     Dates: start: 20150909, end: 20151001
  33. FOLINIC ACID [Suspect]
     Active Substance: LEUCOVORIN
     Dosage: 350 MG, BIW
     Route: 042
     Dates: start: 20151111
  34. CO-AMOXICLAV [Concomitant]
     Active Substance: AMOXICILLIN\CLAVULANIC ACID
     Dosage: 1875 MG, UNK
     Route: 065
     Dates: start: 20160802, end: 20160802
  35. DALTEPARIN [Concomitant]
     Active Substance: DALTEPARIN
     Indication: PRODUCT USED FOR UNKNOWN INDICATION
     Dosage: DAILY DOSE: 5000 IU (INTERNATIONAL UNIT)
     Route: 065
     Dates: start: 20151130, end: 20151207
  36. DEXAMETHASONE. [Concomitant]
     Active Substance: DEXAMETHASONE
     Indication: PRODUCT USED FOR UNKNOWN INDICATION
     Dosage: DAILY DOSE: 8 MILLIGRAM
     Route: 065
     Dates: start: 20150819

REACTIONS (4)
  - Urinary tract infection [Recovering/Resolving]
  - Catheter site infection [Recovered/Resolved]
  - Lower respiratory tract infection [Recovered/Resolved]
  - Acute kidney injury [Recovered/Resolved]

NARRATIVE: CASE EVENT DATE: 20151028
